FAERS Safety Report 5042904-5 (Version None)
Quarter: 2006Q3

REPORT INFORMATION
  Report Type: 
  Country: None (occurrence: None)
  Receive Date: 20060705
  Receipt Date: 20060102
  Transmission Date: 20061208
  Serious: Yes (Other)
  Sender: FDA-Public Use
  Company Number: US-AVENTIS-200610036US

PATIENT
  Sex: Female

DRUGS (4)
  1. KETEK [Suspect]
     Indication: SINUSITIS
     Route: 048
     Dates: start: 20051229, end: 20051229
  2. KETEK [Suspect]
     Indication: BRONCHITIS
     Route: 048
     Dates: start: 20051229, end: 20051229
  3. GUAIFENEX [Concomitant]
     Dosage: DOSE: UNK
     Dates: start: 20051229
  4. DEPO-MEDROL [Concomitant]
     Dosage: DOSE: UNK
     Dates: start: 20051229

REACTIONS (6)
  - BRUXISM [None]
  - DYSPNOEA [None]
  - FALL [None]
  - HYPOKINESIA [None]
  - MUSCULAR WEAKNESS [None]
  - MYALGIA [None]
